APPROVED DRUG PRODUCT: VIGABATRIN
Active Ingredient: VIGABATRIN
Strength: 500MG/PACKET
Dosage Form/Route: FOR SOLUTION;ORAL
Application: A211592 | Product #001 | TE Code: AA
Applicant: INVAGEN PHARMACEUTICALS INC
Approved: Dec 3, 2019 | RLD: No | RS: No | Type: RX